FAERS Safety Report 5223639-2 (Version None)
Quarter: 2007Q1

REPORT INFORMATION
  Report Type: 
  Country: None (occurrence: None)
  Receive Date: 20070125
  Receipt Date: 20070110
  Transmission Date: 20070707
  Serious: Yes (Hospitalization)
  Sender: FDA-Public Use
  Company Number: 6028949

PATIENT
  Age: 67 Year
  Sex: Male

DRUGS (2)
  1. BISOPROLOL FUMARATE [Suspect]
     Indication: ESSENTIAL HYPERTENSION
     Dosage: 1 DOSAGE FORMS (1 DOSAGE FORMS, 1 IN 1 D)
     Route: 048
     Dates: start: 20051015
  2. LOPRIL (25 MG, TABLET) (CAPTOPRIL) [Suspect]
     Indication: ESSENTIAL HYPERTENSION
     Dosage: 50 MG (25 MG,25 MG 1 IN 1 D)
     Route: 048
     Dates: start: 20051015

REACTIONS (1)
  - ERYTHEMA NODOSUM [None]
